APPROVED DRUG PRODUCT: LIDOCAINE
Active Ingredient: LIDOCAINE
Strength: 5%
Dosage Form/Route: OINTMENT;TOPICAL
Application: A206297 | Product #001 | TE Code: AT
Applicant: AMNEAL PHARMACEUTICALS
Approved: Aug 7, 2015 | RLD: No | RS: No | Type: RX